FAERS Safety Report 10426167 (Version 1)
Quarter: 2014Q3

REPORT INFORMATION
  Report Type: Spontaneous
  Country: US (occurrence: None)
  Receive Date: 20140725
  Receipt Date: 20140725
  Transmission Date: 20150326
  Serious: No
  Sender: FDA-Public Use
  Company Number: AP356-00638-SPO-US

PATIENT
  Age: 64 Year
  Sex: Female
  Weight: 105.9 kg

DRUGS (8)
  1. FENOFIBRATE. [Concomitant]
     Active Substance: FENOFIBRATE
  2. ALLOPURINOL. [Concomitant]
     Active Substance: ALLOPURINOL
  3. GLUCOSAMINE/CHONDROITIN [Concomitant]
  4. BELVIQ [Suspect]
     Active Substance: LORCASERIN HYDROCHLORIDE
     Indication: WEIGHT DECREASED
     Route: 048
     Dates: start: 20140404
  5. STOOL SOFTENER (DOCUSATE SODIUM) [Concomitant]
     Active Substance: DOCUSATE SODIUM
  6. LOVASTATIN. [Concomitant]
     Active Substance: LOVASTATIN
  7. LOSARTAN/HCTZ (HYZAAR) [Concomitant]
  8. ASPIRIN (ACETYLSALICYLIC ACID) [Concomitant]
     Active Substance: ASPIRIN

REACTIONS (5)
  - Somnolence [None]
  - Balance disorder [None]
  - Urinary incontinence [None]
  - Chills [None]
  - Dry mouth [None]

NARRATIVE: CASE EVENT DATE: 20140404
